FAERS Safety Report 8335103-2 (Version None)
Quarter: 2012Q2

REPORT INFORMATION
  Report Type: 
  Country: None (occurrence: None)
  Receive Date: 20120503
  Receipt Date: 20100511
  Transmission Date: 20120825
  Serious: No
  Sender: FDA-Public Use
  Company Number: US-TEVA-2010002684

PATIENT
  Sex: Male
  Weight: 88.53 kg

DRUGS (8)
  1. NUVIGIL [Suspect]
     Indication: SLEEP APNOEA SYNDROME
     Dosage: 500 MILLIGRAM;
     Route: 048
     Dates: start: 20100510
  2. TEKTURNA + DIURETIC [Concomitant]
  3. PRISTIQ [Concomitant]
  4. FISH OIL (LOVASA) [Concomitant]
     Dates: start: 20090101
  5. VITAMIN [Concomitant]
  6. EXPECTORANT [Concomitant]
  7. XYZOL [Concomitant]
     Dates: start: 20100101
  8. ANTIHISTAMINE [Concomitant]
     Dates: start: 20100510

REACTIONS (7)
  - INSOMNIA [None]
  - SOMNOLENCE [None]
  - MOOD ALTERED [None]
  - PRURITUS [None]
  - HEADACHE [None]
  - DRUG INEFFECTIVE [None]
  - MEDICATION ERROR [None]
